FAERS Safety Report 7094606 (Version 6)
Quarter: 2014Q2

REPORT INFORMATION
  Report Type: Spontaneous
  Country: US (occurrence: US)
  Receive Date: 20090824
  Receipt Date: 20140407
  Transmission Date: 20141212
  Serious: Yes (Hospitalization, Other)
  Sender: FDA-Public Use
  Company Number: US-ALEXION-A200900662

PATIENT
  Age: 49 Year
  Sex: Female
  Weight: 65.8 kg

DRUGS (4)
  1. SOLIRIS [Suspect]
     Indication: PAROXYSMAL NOCTURNAL HAEMOGLOBINURIA
     Dosage: UNK
     Route: 042
     Dates: start: 200903
  2. SOLIRIS [Suspect]
     Dosage: 900 MG, Q2W
     Route: 042
  3. PREDNISONE [Concomitant]
     Indication: PAROXYSMAL NOCTURNAL HAEMOGLOBINURIA
  4. CYCLOSPORINE [Concomitant]
     Indication: PAROXYSMAL NOCTURNAL HAEMOGLOBINURIA

REACTIONS (27)
  - Febrile neutropenia [Unknown]
  - Lobar pneumonia [Unknown]
  - Lung abscess [Unknown]
  - Bone marrow failure [Unknown]
  - Condition aggravated [Unknown]
  - Confusional state [Unknown]
  - Lethargy [Unknown]
  - Diarrhoea [Unknown]
  - Palpitations [Recovered/Resolved]
  - Sinus headache [Unknown]
  - Pain [Unknown]
  - Ear pain [Unknown]
  - Paranasal sinus mucosal hypertrophy [Unknown]
  - Chromaturia [Unknown]
  - Blood bilirubin increased [Unknown]
  - Bilirubin conjugated increased [Unknown]
  - Platelet count decreased [Unknown]
  - International normalised ratio increased [Unknown]
  - Vitamin K deficiency [Unknown]
  - Hypertension [Unknown]
  - Oral candidiasis [Recovering/Resolving]
  - Haemoglobin decreased [Recovering/Resolving]
  - Headache [Unknown]
  - Nausea [Unknown]
  - Enterobacter infection [Unknown]
  - Hepatic enzyme increased [Unknown]
  - Fungal infection [Unknown]
